FAERS Safety Report 4784325-6 (Version None)
Quarter: 2005Q3

REPORT INFORMATION
  Report Type: 
  Country: None (occurrence: None)
  Receive Date: 20050928
  Receipt Date: 20050912
  Transmission Date: 20060218
  Serious: Yes (Hospitalization)
  Sender: FDA-Public Use
  Company Number: US-2005-007297

PATIENT
  Age: 25 Year
  Sex: Female
  Weight: 81.6 kg

DRUGS (1)
  1. MIRENA [Suspect]
     Indication: CONTRACEPTION
     Dosage: 20 ?G/DAY, CONT, INTRA-UTERINE
     Route: 015
     Dates: start: 20050101, end: 20050502

REACTIONS (10)
  - BLOOD CREATININE INCREASED [None]
  - DEHYDRATION [None]
  - GASTROENTERITIS VIRAL [None]
  - HYPOKALAEMIA [None]
  - MENORRHAGIA [None]
  - MUSCLE SPASMS [None]
  - PAIN [None]
  - UPPER RESPIRATORY TRACT INFECTION [None]
  - UTERINE PERFORATION [None]
  - VIRAL INFECTION [None]
